FAERS Safety Report 10108881 (Version 2)
Quarter: 2014Q2

REPORT INFORMATION
  Report Type: Spontaneous
  Country: US (occurrence: US)
  Receive Date: 20140425
  Receipt Date: 20140425
  Transmission Date: 20141212
  Serious: Yes (Hospitalization, Other)
  Sender: FDA-Public Use
  Company Number: US-BEH-2011027811

PATIENT
  Age: 84 Year
  Sex: Female
  Weight: 67 kg

DRUGS (36)
  1. HIZENTRA [Suspect]
     Dosage: INFUSED 35 ML WEEKLY VIA 4 SITES
     Route: 058
     Dates: start: 20101025
  2. HIZENTRA [Suspect]
     Indication: IMMUNODEFICIENCY COMMON VARIABLE
  3. HIZENTRA [Suspect]
  4. HIZENTRA [Suspect]
  5. HIZENTRA [Suspect]
     Dosage: IN 4 SITES OVER 2 HOURS
     Route: 058
  6. HIZENTRA [Suspect]
     Dosage: INFUSED 40 ML WEEKLY VIA 4 SITES OVER 2 HOURS
     Route: 058
     Dates: start: 20121029
  7. HIZENTRA [Suspect]
     Dosage: INFUSE VIA 4 SITES OVER 2 HOURS
     Route: 058
     Dates: start: 20140405
  8. TIZANIDINE [Concomitant]
  9. ALVESCO [Concomitant]
  10. FLUOROURACIL [Concomitant]
  11. BROVANA [Concomitant]
  12. MIRAPEX [Concomitant]
  13. LUMIGAN [Concomitant]
  14. GABAPENTIN [Concomitant]
  15. GLIPIZIDE XL [Concomitant]
  16. FENOFIBRATE [Concomitant]
  17. ALBUTEROL [Concomitant]
  18. TRIAMTERENE [Concomitant]
  19. VICODIN [Concomitant]
  20. XOPENEX [Concomitant]
  21. FLUTICASONE [Concomitant]
  22. AFRIN [Concomitant]
  23. BUDESONIDE [Concomitant]
  24. PROAIR [Concomitant]
  25. DIPHENHYDRAMINE [Concomitant]
  26. LMX [Concomitant]
  27. ASPIRIN [Concomitant]
  28. CITRACAL D [Concomitant]
  29. POTASSIUM CHLORIDE ER [Concomitant]
  30. CREON [Concomitant]
  31. EPIPEN [Concomitant]
     Indication: PREMEDICATION
  32. LIDOCAINE [Concomitant]
  33. NORCO [Concomitant]
  34. TRAMADOL [Concomitant]
  35. SPIRIVA [Concomitant]
  36. FENOFIBRATE [Concomitant]

REACTIONS (7)
  - Pneumonia [Unknown]
  - Dyspnoea [Unknown]
  - Asthma [Unknown]
  - Asthma [Unknown]
  - Fatigue [Unknown]
  - Infusion site extravasation [Unknown]
  - Infusion site reaction [Unknown]
